FAERS Safety Report 6377840-5 (Version None)
Quarter: 2009Q3

REPORT INFORMATION
  Report Type: 
  Country: None (occurrence: None)
  Receive Date: 20090921
  Receipt Date: 20090914
  Transmission Date: 20100115
  Serious: Yes (Death)
  Sender: FDA-Public Use
  Company Number: AE-2009-196

PATIENT
  Age: 52 Year
  Sex: Female

DRUGS (2)
  1. METOPROLOL [Suspect]
     Dosage: ORAL
     Route: 048
  2. AMLODIPINE [Suspect]
     Dosage: ORAL
     Route: 048

REACTIONS (3)
  - CARDIAC ARREST [None]
  - COMPLETED SUICIDE [None]
  - RESPIRATORY ARREST [None]
